FAERS Safety Report 8624814-7 (Version None)
Quarter: 2012Q3

REPORT INFORMATION
  Report Type: 
  Country: None (occurrence: None)
  Receive Date: 20120827
  Receipt Date: 20120815
  Transmission Date: 20120928
  Serious: Yes (Hospitalization, Disabling, Other)
  Sender: FDA-Public Use
  Company Number: US-009507513-1207USA00053

PATIENT

DRUGS (6)
  1. SYNTHROID [Concomitant]
     Indication: HYPOTHYROIDISM
     Dosage: UNK
     Route: 048
  2. FOSAMAX PLUS D [Suspect]
     Indication: OSTEOPENIA
     Route: 048
  3. FOSAMAX [Suspect]
     Indication: OSTEOPENIA
     Dosage: UNK
     Route: 048
  4. LEVOXYL [Concomitant]
     Indication: HYPOTHYROIDISM
     Dosage: 0.15-0.175 MG, QD
     Route: 048
  5. FOSAMAX [Suspect]
     Indication: OSTEOPOROSIS
     Dosage: 70 MG, QW
     Route: 048
  6. FOSAMAX PLUS D [Suspect]
     Indication: OSTEOPOROSIS

REACTIONS (48)
  - BONE DENSITY DECREASED [None]
  - OSTEOARTHRITIS [None]
  - PALPITATIONS [None]
  - LYMPHADENOPATHY [None]
  - LIMB INJURY [None]
  - DEVICE FAILURE [None]
  - OSTEOPOROSIS [None]
  - BONE NEOPLASM MALIGNANT [None]
  - CARDIAC FAILURE CONGESTIVE [None]
  - PNEUMONIA [None]
  - SCOLIOSIS [None]
  - TRICUSPID VALVE INCOMPETENCE [None]
  - ANAESTHETIC COMPLICATION [None]
  - HYPERTENSION [None]
  - CARDIAC MURMUR [None]
  - VENTRICULAR EXTRASYSTOLES [None]
  - BONE GRAFT [None]
  - OSTEOPETROSIS [None]
  - SPINAL OSTEOARTHRITIS [None]
  - ADENOMATOUS POLYPOSIS COLI [None]
  - WEIGHT INCREASED [None]
  - OPEN REDUCTION OF FRACTURE [None]
  - INSOMNIA [None]
  - CARDIAC ANEURYSM [None]
  - OEDEMA PERIPHERAL [None]
  - PAIN IN EXTREMITY [None]
  - GOUT [None]
  - DIVERTICULUM [None]
  - NAIL DISCOLOURATION [None]
  - CHEST PAIN [None]
  - AORTIC VALVE SCLEROSIS [None]
  - PULMONARY VALVE INCOMPETENCE [None]
  - SEBORRHOEIC KERATOSIS [None]
  - ASTHENIA [None]
  - STRESS FRACTURE [None]
  - BURSITIS [None]
  - DIVERTICULITIS [None]
  - UPPER RESPIRATORY TRACT INFECTION [None]
  - MITRAL VALVE INCOMPETENCE [None]
  - HYPERLIPIDAEMIA [None]
  - FEMUR FRACTURE [None]
  - HIP ARTHROPLASTY [None]
  - IMPAIRED HEALING [None]
  - TONSILLECTOMY [None]
  - APPENDICECTOMY [None]
  - ENDODONTIC PROCEDURE [None]
  - CELLULITIS [None]
  - ELECTROCARDIOGRAM ABNORMAL [None]
